FAERS Safety Report 7541718-1 (Version None)
Quarter: 2011Q2

REPORT INFORMATION
  Report Type: 
  Country: None (occurrence: None)
  Receive Date: 20110606
  Receipt Date: 20110525
  Transmission Date: 20111010
  Serious: Yes (Other)
  Sender: FDA-Public Use
  Company Number: 2011SP024363

PATIENT

DRUGS (6)
  1. PEG-INTRON [Suspect]
     Indication: HEPATITIS C
     Dosage: SC
     Route: 058
  2. COPEGUS [Suspect]
     Indication: HEPATITIS C
  3. REBETOL [Suspect]
     Indication: HEPATITIS C
     Dosage: PO
     Route: 048
  4. INTRON A [Suspect]
     Indication: HEPATITIS C
     Dosage: IM
     Route: 030
  5. INTERFERON [Suspect]
     Indication: HEPATITIS C
  6. PEGASYS [Suspect]
     Indication: HEPATITIS C

REACTIONS (5)
  - HIV INFECTION [None]
  - LACTIC ACIDOSIS [None]
  - SUPERINFECTION [None]
  - HEPATITIS C [None]
  - MUSCLE HAEMORRHAGE [None]
